FAERS Safety Report 16648008 (Version 1)
Quarter: 2019Q3

REPORT INFORMATION
  Report Type: Spontaneous
  Country: US (occurrence: US)
  Receive Date: 20190617
  Receipt Date: 20190617
  Transmission Date: 20191004
  Serious: Yes (Hospitalization)
  Sender: FDA-Public Use
  Company Number: None

PATIENT
  Sex: Female

DRUGS (5)
  1. PLAQUENIL [Concomitant]
     Active Substance: HYDROXYCHLOROQUINE SULFATE
  2. LEFLUNOMIDE TAB [Concomitant]
     Active Substance: LEFLUNOMIDE
  3. HUMIRA [Suspect]
     Active Substance: ADALIMUMAB
     Indication: DRUG THERAPY
     Dosage: ?          OTHER DOSE:0.4ML;?
     Route: 058
     Dates: start: 20190524
  4. CIMETIDONE TAB [Concomitant]
  5. ELMIRON CAP [Concomitant]

REACTIONS (2)
  - Therapy cessation [None]
  - White blood cell count decreased [None]
